FAERS Safety Report 20865770 (Version 1)
Quarter: 2022Q2

REPORT INFORMATION
  Report Type: Spontaneous
  Country: FR (occurrence: FR)
  Receive Date: 20220524
  Receipt Date: 20220524
  Transmission Date: 20220720
  Serious: Yes (Other)
  Sender: FDA-Public Use
  Company Number: None

PATIENT
  Age: 33 Year
  Sex: Female
  Weight: 55 kg

DRUGS (3)
  1. FLUOXETINE [Suspect]
     Active Substance: FLUOXETINE HYDROCHLORIDE
     Indication: Obsessive-compulsive disorder
     Dosage: FLUOXETINE BASE , UNIT DOSE : 20 MG , FREQUENCY TIME : 1 DAY , DURATION : 13 DAYS
     Route: 048
     Dates: start: 20220120, end: 20220202
  2. HYDROXYZINE [Suspect]
     Active Substance: HYDROXYZINE HYDROCHLORIDE
     Indication: Obsessive-compulsive disorder
     Dosage: HYDROXYZINE (CHLORHYDRATE D) , UNIT DOSE : 25 MG ,FREQUENCY TIME : 1 DAY , DURATION : 15 DAYS
     Route: 048
     Dates: start: 20220118, end: 20220202
  3. COMIRNATY [Suspect]
     Active Substance: TOZINAMERAN
     Indication: COVID-19 immunisation
     Dosage: R1 , UNIT DOSE : 1 DF ,FREQUENCY TIME : 1 TOTAL , DURATION : 1 DAY , DISPERSION TO BE DILUTED FOR IN
     Route: 030
     Dates: start: 20220127, end: 20220127

REACTIONS (1)
  - Dyskinesia [Recovering/Resolving]

NARRATIVE: CASE EVENT DATE: 20220129
